FAERS Safety Report 8018387-X (Version None)
Quarter: 2012Q1

REPORT INFORMATION
  Report Type: 
  Country: None (occurrence: None)
  Receive Date: 20120103
  Receipt Date: 20111223
  Transmission Date: 20120608
  Serious: Yes (Hospitalization)
  Sender: FDA-Public Use
  Company Number: US-BAYER-2011-050046

PATIENT
  Age: 30 Year
  Sex: Female
  Weight: 50 kg

DRUGS (9)
  1. DIAZEPAM [Concomitant]
     Indication: ANXIETY
     Dosage: 10 MG, BID
     Route: 048
     Dates: start: 20061201, end: 20091001
  2. YASMIN [Suspect]
     Indication: CONTRACEPTION
     Dosage: UNK
     Dates: start: 20031227
  3. YAZ [Suspect]
     Indication: CONTRACEPTION
  4. YASMIN [Suspect]
     Indication: PELVIC PAIN
  5. YASMIN [Suspect]
     Indication: MENSTRUATION IRREGULAR
     Dosage: UNK
     Dates: start: 20041101, end: 20050301
  6. SUBUTEX [Concomitant]
     Indication: DEPRESSION
     Dosage: 8 MG, BID
     Route: 048
     Dates: start: 20061201, end: 20091001
  7. SUBUTEX [Concomitant]
     Indication: AFFECTIVE DISORDER
  8. YAZ [Suspect]
     Indication: PREMENSTRUAL SYNDROME
     Dosage: UNK
     Dates: start: 20071230, end: 20080123
  9. YASMIN [Suspect]
     Indication: PREMENSTRUAL SYNDROME
     Dosage: UNK
     Dates: start: 20020604, end: 20030501

REACTIONS (12)
  - INJURY [None]
  - HEADACHE [None]
  - EMOTIONAL DISTRESS [None]
  - ANXIETY [None]
  - PARANOIA [None]
  - PHOTOPHOBIA [None]
  - CEREBRAL INFARCTION [None]
  - PHOTOPSIA [None]
  - MEMORY IMPAIRMENT [None]
  - SPEECH DISORDER DEVELOPMENTAL [None]
  - DISTURBANCE IN ATTENTION [None]
  - CONFUSIONAL STATE [None]
